FAERS Safety Report 6412743-9 (Version None)
Quarter: 2009Q4

REPORT INFORMATION
  Report Type: 
  Country: None (occurrence: None)
  Receive Date: 20091023
  Receipt Date: 20091014
  Transmission Date: 20100525
  Serious: Yes (Other)
  Sender: FDA-Public Use
  Company Number: CH-ABBOTT-09P-151-0602691-00

PATIENT
  Sex: Male

DRUGS (9)
  1. DEPAKENE [Suspect]
     Indication: DRUG EXPOSURE DURING PREGNANCY
     Route: 064
  2. METHADONE HYDROCHLORIDE [Suspect]
     Indication: DRUG EXPOSURE DURING PREGNANCY
     Route: 064
  3. TEMESTA [Suspect]
     Indication: DRUG EXPOSURE DURING PREGNANCY
     Route: 064
  4. COCAINE [Suspect]
     Indication: DRUG EXPOSURE DURING PREGNANCY
     Route: 064
  5. DIAMORPHINE [Suspect]
     Indication: DRUG EXPOSURE DURING PREGNANCY
     Route: 064
  6. CITALOPRAM HYDROBROMIDE [Suspect]
     Indication: DRUG EXPOSURE DURING PREGNANCY
     Route: 064
  7. ZYPREXA [Suspect]
     Indication: DRUG EXPOSURE DURING PREGNANCY
     Route: 064
  8. SEROQUEL [Suspect]
     Indication: DRUG EXPOSURE DURING PREGNANCY
     Route: 064
  9. ANTABUSE [Suspect]
     Indication: DRUG EXPOSURE DURING PREGNANCY
     Route: 064

REACTIONS (4)
  - DRUG EXPOSURE DURING PREGNANCY [None]
  - DRUG WITHDRAWAL SYNDROME NEONATAL [None]
  - FOETAL GROWTH RETARDATION [None]
  - NEONATAL RESPIRATORY DISTRESS SYNDROME [None]
